FAERS Safety Report 6795390-9 (Version None)
Quarter: 2010Q2

REPORT INFORMATION
  Report Type: 
  Country: None (occurrence: None)
  Receive Date: 20100624
  Receipt Date: 20100624
  Transmission Date: 20101027
  Serious: Yes (Life-Threatening, Hospitalization, Disabling)
  Sender: FDA-Public Use
  Company Number: None

PATIENT
  Sex: Female
  Weight: 68.0396 kg

DRUGS (1)
  1. ATENOLOL [Suspect]
     Indication: BLOOD PRESSURE
     Dosage: 1 PER DAY

REACTIONS (6)
  - NERVOUS SYSTEM DISORDER [None]
  - PRURITUS [None]
  - SUICIDE ATTEMPT [None]
  - SWELLING FACE [None]
  - SWOLLEN TONGUE [None]
  - VASCULAR RUPTURE [None]
